FAERS Safety Report 17942948 (Version 1)
Quarter: 2020Q2

REPORT INFORMATION
  Report Type: Spontaneous
  Country: US (occurrence: US)
  Receive Date: 20200625
  Receipt Date: 20200625
  Transmission Date: 20200714
  Serious: No
  Sender: FDA-Public Use
  Company Number: US-ASTRAZENECA-2020SE77834

PATIENT
  Sex: Female

DRUGS (1)
  1. BYDUREON BCISE [Suspect]
     Active Substance: EXENATIDE
     Route: 058

REACTIONS (8)
  - Weight decreased [Unknown]
  - Hypotension [Unknown]
  - Injection site erythema [Unknown]
  - Injection site pruritus [Unknown]
  - Device issue [Unknown]
  - Pollakiuria [Unknown]
  - Drug dose omission by device [Unknown]
  - Injection site nodule [Unknown]
